FAERS Safety Report 8775450 (Version 2)
Quarter: 2012Q4

REPORT INFORMATION
  Report Type: 
  Country: IT (occurrence: IT)
  Receive Date: 20120911
  Receipt Date: 20121005
  Transmission Date: 20130627
  Serious: Yes (Hospitalization)
  Sender: FDA-Public Use
  Company Number: IT-ROCHE-1114808

PATIENT
  Age: 70 Year
  Sex: Female

DRUGS (6)
  1. MABTHERA [Suspect]
     Indication: NON-HODGKIN^S LYMPHOMA
     Route: 042
     Dates: start: 20120712, end: 20120712
  2. TACHIPIRINA [Concomitant]
     Route: 048
     Dates: start: 20120712, end: 20120712
  3. POLARAMIN [Concomitant]
     Route: 048
     Dates: start: 20120712, end: 20120712
  4. CARDURA [Concomitant]
     Route: 048
  5. ZYLORIC [Concomitant]
     Route: 048
  6. FOSIPRES [Concomitant]
     Route: 048

REACTIONS (5)
  - Hypotension [Recovered/Resolved]
  - Malaise [Recovered/Resolved]
  - Oropharyngeal discomfort [Recovered/Resolved]
  - Nasal obstruction [Recovered/Resolved]
  - Infusion related reaction [Recovered/Resolved]
